FAERS Safety Report 5902599-2 (Version None)
Quarter: 2008Q3

REPORT INFORMATION
  Report Type: 
  Country: None (occurrence: None)
  Receive Date: 20080926
  Receipt Date: 20080909
  Transmission Date: 20090109
  Serious: Yes (Hospitalization)
  Sender: FDA-Public Use
  Company Number: 2008S1012149

PATIENT
  Age: 71 Year
  Sex: Female
  Weight: 95.2554 kg

DRUGS (4)
  1. PERFOROMIST (FORMOTEROL FUMARATE) [Suspect]
     Indication: CHRONIC OBSTRUCTIVE PULMONARY DISEASE
     Dosage: 20 UG;TWICE A DAY; INHALATION
  2. PROVENTIL /00139501/ [Concomitant]
  3. IPRATROPIUM BROMIDE AND ALBUTEROL SULFATE INHALATION SOLUTION [Concomitant]
  4. ASTELIN /00884002/ [Concomitant]

REACTIONS (4)
  - MIDDLE INSOMNIA [None]
  - PHARYNGEAL OEDEMA [None]
  - PRURITUS [None]
  - THROAT TIGHTNESS [None]
